FAERS Safety Report 5947349-9 (Version None)
Quarter: 2008Q4

REPORT INFORMATION
  Report Type: 
  Country: None (occurrence: None)
  Receive Date: 20081110
  Receipt Date: 20081031
  Transmission Date: 20090506
  Serious: Yes (Death)
  Sender: FDA-Public Use
  Company Number: NO-PFIZER INC-2006037234

PATIENT
  Age: 63 Year
  Sex: Female

DRUGS (3)
  1. CAMPTOSAR [Suspect]
     Indication: BRAIN NEOPLASM MALIGNANT
     Dates: start: 20051201, end: 20060103
  2. FLUOROURACIL [Suspect]
     Indication: BRAIN NEOPLASM MALIGNANT
  3. LEUCOVORIN CALCIUM [Suspect]
     Indication: BRAIN NEOPLASM MALIGNANT

REACTIONS (5)
  - DEPRESSED LEVEL OF CONSCIOUSNESS [None]
  - FACIAL PARESIS [None]
  - HALLUCINATION [None]
  - HYDRONEPHROSIS [None]
  - RENAL FAILURE [None]
